FAERS Safety Report 5060175-0 (Version None)
Quarter: 2006Q3

REPORT INFORMATION
  Report Type: 
  Country: None (occurrence: None)
  Receive Date: 20060719
  Receipt Date: 20060705
  Transmission Date: 20061208
  Serious: Yes (Death)
  Sender: FDA-Public Use
  Company Number: 23100300

PATIENT
  Age: 71 Year
  Sex: Male

DRUGS (1)
  1. ARGATROBAN [Suspect]
     Indication: CEREBRAL INFARCTION
     Dates: start: 20050629, end: 20050702

REACTIONS (1)
  - BRAIN OEDEMA [None]
